FAERS Safety Report 15806655 (Version 1)
Quarter: 2019Q1

REPORT INFORMATION
  Report Type: Spontaneous
  Country: US (occurrence: US)
  Receive Date: 20190110
  Receipt Date: 20190110
  Transmission Date: 20190417
  Serious: No
  Sender: FDA-Public Use
  Company Number: US-009507513-1812USA011250

PATIENT
  Sex: Female

DRUGS (11)
  1. ENDOMETRIN [Concomitant]
     Active Substance: PROGESTERONE
  2. MINIVELLE [Concomitant]
     Active Substance: ESTRADIOL
  3. FOLLISTIM AQ [Suspect]
     Active Substance: FOLLITROPIN
     Indication: INFERTILITY FEMALE
     Dosage: 450 TO 600 U, QD
     Route: 058
     Dates: start: 20180830
  4. AZITHROMYCIN ANHYDROUS. [Concomitant]
     Active Substance: AZITHROMYCIN ANHYDROUS
  5. MENOPUR [Concomitant]
     Active Substance: FOLLITROPIN\LUTEINIZING HORMONE
  6. CLOMIPHENE CITRATE. [Concomitant]
     Active Substance: CLOMIPHENE CITRATE
  7. GANIRELIX ACETATE INJECTION [Suspect]
     Active Substance: GANIRELIX ACETATE
     Indication: INFERTILITY FEMALE
     Dosage: 250 MICROGRAM, QD AS DIRECTED
     Route: 058
     Dates: start: 20180830
  8. LEUPROLIDE [Concomitant]
     Active Substance: LEUPROLIDE
  9. NOVAREL [Concomitant]
     Active Substance: CHORIOGONADOTROPIN ALFA
  10. ASPIRIN. [Concomitant]
     Active Substance: ASPIRIN
  11. DEXAMETHASONE. [Concomitant]
     Active Substance: DEXAMETHASONE

REACTIONS (2)
  - Injection site erythema [Not Recovered/Not Resolved]
  - Injection site pain [Not Recovered/Not Resolved]

NARRATIVE: CASE EVENT DATE: 2018
